FAERS Safety Report 4784491-2 (Version None)
Quarter: 2005Q3

REPORT INFORMATION
  Report Type: 
  Country: None (occurrence: None)
  Receive Date: 20050930
  Receipt Date: 20050920
  Transmission Date: 20060218
  Serious: Yes (Other)
  Sender: FDA-Public Use
  Company Number: US-GLAXOSMITHKLINE-A0575061A

PATIENT
  Age: 34 Year
  Sex: Female

DRUGS (4)
  1. IMITREX [Suspect]
     Indication: MIGRAINE
     Dosage: 200MG AS REQUIRED
     Route: 048
  2. IMITREX [Suspect]
     Dosage: 1INJ AS REQUIRED
     Route: 058
  3. UNSPECIFIED MEDICATION [Concomitant]
  4. COLESTID [Concomitant]

REACTIONS (3)
  - ABORTION SPONTANEOUS [None]
  - MIGRAINE [None]
  - NAUSEA [None]
